FAERS Safety Report 7567947-9 (Version None)
Quarter: 2011Q2

REPORT INFORMATION
  Report Type: 
  Country: None (occurrence: None)
  Receive Date: 20110616
  Receipt Date: 20110607
  Transmission Date: 20111010
  Serious: Yes (Hospitalization)
  Sender: FDA-Public Use
  Company Number: GER/UKI/11/0018634

PATIENT
  Age: 76 Year
  Sex: Male
  Weight: 57.7 kg

DRUGS (18)
  1. ASPIRIN [Concomitant]
  2. CODEINE SULFATE [Concomitant]
  3. CYCLIZINE (CYCLIZINE) [Concomitant]
  4. CIPROFLOXACIN [Suspect]
     Indication: NEUTROPENIC SEPSIS
     Dosage: 500 MG, 2 IN 1 D, ORAL
     Route: 048
     Dates: start: 20110520, end: 20110523
  5. CLADRIBINE [Concomitant]
  6. ACETAMINOPHEN [Concomitant]
  7. PEGFILGRASTIM (PEGIFILGRASTIM) [Concomitant]
  8. TIOTROPIUM BROMIDE (TIOTROPIUM BROMIDE) [Concomitant]
  9. ITRACONAZOLE [Concomitant]
  10. MACROGOL (MACROGOL) [Concomitant]
  11. CALCICHEW (CALCIUM CARBONATE) [Concomitant]
  12. PIPERACILLIN AND TAZOBACTAM [Concomitant]
  13. ACYCLOVIR [Concomitant]
  14. FLUCONAZOLE [Concomitant]
  15. ALLOPURINOL [Concomitant]
  16. TINZAPARIN (TINZAPARIN) [Concomitant]
  17. ISOSORBIDE MONONITRATE [Concomitant]
  18. SERETIDE (SERETIDE /01420901/) [Concomitant]

REACTIONS (5)
  - GRIP STRENGTH DECREASED [None]
  - INFECTIVE TENOSYNOVITIS [None]
  - OEDEMA PERIPHERAL [None]
  - PAIN IN EXTREMITY [None]
  - TENDERNESS [None]
